FAERS Safety Report 13307346 (Version 1)
Quarter: 2017Q1

REPORT INFORMATION
  Report Type: Spontaneous
  Country: US (occurrence: US)
  Receive Date: 20170308
  Receipt Date: 20170308
  Transmission Date: 20170428
  Serious: No
  Sender: FDA-Public Use
  Company Number: US-PERRIGO-16US014054

PATIENT
  Sex: Female
  Weight: 53.61 kg

DRUGS (1)
  1. NAPROXEN SODIUM. [Suspect]
     Active Substance: NAPROXEN SODIUM
     Indication: PAIN
     Dosage: 440 MG, 1 TO 3 TIMES DAILY
     Route: 048
     Dates: start: 2011

REACTIONS (2)
  - Incorrect drug administration duration [Unknown]
  - Overdose [Unknown]

NARRATIVE: CASE EVENT DATE: 2011
